FAERS Safety Report 4526625-0 (Version None)
Quarter: 2004Q4

REPORT INFORMATION
  Report Type: 
  Country: None (occurrence: None)
  Receive Date: 20041213
  Receipt Date: 20041201
  Transmission Date: 20050328
  Serious: Yes (Hospitalization)
  Sender: FDA-Public Use
  Company Number: 2004-04432

PATIENT
  Age: 27 Year
  Sex: Female
  Weight: 59 kg

DRUGS (1)
  1. MICROGESTIN FE 1.5/30 [Suspect]
     Indication: ORAL CONTRACEPTION
     Dosage: 1 TABLET, DAILY, ORAL
     Route: 048
     Dates: start: 20040601, end: 20040618

REACTIONS (4)
  - ARTHRALGIA [None]
  - HEADACHE [None]
  - HEPATITIS VIRAL [None]
  - MYALGIA [None]
